FAERS Safety Report 18676489 (Version 7)
Quarter: 2022Q1

REPORT INFORMATION
  Report Type: Spontaneous
  Country: IT (occurrence: IT)
  Receive Date: 20201229
  Receipt Date: 20220223
  Transmission Date: 20220423
  Serious: No
  Sender: FDA-Public Use
  Company Number: IT-PFIZER INC-2020507623

PATIENT
  Sex: Female

DRUGS (1)
  1. FILGRASTIM [Suspect]
     Active Substance: FILGRASTIM
     Indication: Neoplasm
     Dosage: UNK

REACTIONS (4)
  - Injury associated with device [Unknown]
  - Device difficult to use [Unknown]
  - Product label issue [Unknown]
  - Off label use [Unknown]
